FAERS Safety Report 4877867-6 (Version None)
Quarter: 2006Q1

REPORT INFORMATION
  Report Type: 
  Country: None (occurrence: None)
  Receive Date: 20060109
  Receipt Date: 20051227
  Transmission Date: 20060701
  Serious: Yes (Hospitalization, Other)
  Sender: FDA-Public Use
  Company Number: 2006000288

PATIENT
  Age: 43 Year
  Sex: Female
  Weight: 107.9561 kg

DRUGS (15)
  1. DILANTIN KAPSEAL [Suspect]
     Indication: EPILEPSY
     Dosage: 150 MG (50 MG, 3 IN 1 D), ORAL; 400 MG (100 MG, 4 IN 1 D)
     Route: 048
     Dates: start: 20050101, end: 20051209
  2. DILANTIN KAPSEAL [Suspect]
     Indication: EPILEPSY
     Dosage: 150 MG (50 MG, 3 IN 1 D), ORAL; 400 MG (100 MG, 4 IN 1 D)
     Route: 048
     Dates: start: 20051209
  3. LOPERAMIDE HCL [Concomitant]
  4. PROTONIX [Concomitant]
  5. NABUMETONE [Concomitant]
  6. NITROGLYCERIN [Concomitant]
  7. NITROGLYCERIN TRANSDERMAL SYSTEM (GLYCERYL TRINITRATE) [Concomitant]
  8. IBUPROFEN [Concomitant]
  9. OXYCODONE (OXYCODONE) [Concomitant]
  10. ALBUTEROL [Concomitant]
  11. ADVAIR DISKUS 100/50 [Concomitant]
  12. PAROXETINE (PAROXETINE) [Concomitant]
  13. METOCLOPRAMIDE [Concomitant]
  14. DITROPAN XL [Concomitant]
  15. ASACOL [Concomitant]

REACTIONS (3)
  - ANTICONVULSANT DRUG LEVEL BELOW THERAPEUTIC [None]
  - GRAND MAL CONVULSION [None]
  - HEADACHE [None]
